FAERS Safety Report 5709117-2 (Version None)
Quarter: 2008Q2

REPORT INFORMATION
  Report Type: 
  Country: None (occurrence: None)
  Receive Date: 20080416
  Receipt Date: 20080416
  Transmission Date: 20081010
  Serious: Yes (Life-Threatening, Hospitalization)
  Sender: FDA-Public Use
  Company Number: None

PATIENT
  Sex: Male
  Weight: 74.8435 kg

DRUGS (1)
  1. AMBIEN [Suspect]
     Indication: INSOMNIA
     Dosage: 10MG 1 TAB PPN PO
     Route: 048
     Dates: start: 20040101, end: 20080117

REACTIONS (5)
  - AMNESIA [None]
  - IMPAIRED DRIVING ABILITY [None]
  - MULTIPLE INJURIES [None]
  - POISONING [None]
  - ROAD TRAFFIC ACCIDENT [None]
